FAERS Safety Report 6758873-3 (Version None)
Quarter: 2010Q2

REPORT INFORMATION
  Report Type: 
  Country: None (occurrence: None)
  Receive Date: 20100607
  Receipt Date: 20100527
  Transmission Date: 20101027
  Serious: Yes (Hospitalization, Other)
  Sender: FDA-Public Use
  Company Number: PHHY2010JP34776

PATIENT
  Age: 73 Year
  Sex: Male

DRUGS (3)
  1. VOLTAREN [Suspect]
     Indication: NASOPHARYNGITIS
     Dosage: UNK
     Route: 048
     Dates: start: 20080801
  2. OMEPRAZOLE [Concomitant]
     Dosage: UNK
     Route: 048
  3. ITRACONAZOLE [Concomitant]
     Dosage: UNK

REACTIONS (7)
  - HEAT ILLNESS [None]
  - NEUROSIS [None]
  - PHOTOSENSITIVITY REACTION [None]
  - PRURITUS [None]
  - PYREXIA [None]
  - RASH [None]
  - SYMPATHETIC NERVE INJURY [None]
